FAERS Safety Report 6717512-8 (Version None)
Quarter: 2010Q2

REPORT INFORMATION
  Report Type: 
  Country: None (occurrence: None)
  Receive Date: 20100510
  Receipt Date: 20100430
  Transmission Date: 20101027
  Serious: Yes (Other)
  Sender: FDA-Public Use
  Company Number: US-ASTRAZENECA-2010SE19702

PATIENT
  Age: 63 Year
  Sex: Female
  Weight: 60.3 kg

DRUGS (2)
  1. ATACAND [Suspect]
     Indication: HYPERTENSION
     Route: 048
     Dates: start: 20050101, end: 20090101
  2. VITAMINS [Concomitant]

REACTIONS (3)
  - CARDIAC DISORDER [None]
  - EXTRASYSTOLES [None]
  - PERICARDIAL EFFUSION [None]
